FAERS Safety Report 7453621-6 (Version None)
Quarter: 2011Q2

REPORT INFORMATION
  Report Type: 
  Country: None (occurrence: None)
  Receive Date: 20110502
  Receipt Date: 20110421
  Transmission Date: 20111010
  Serious: Yes (Hospitalization)
  Sender: FDA-Public Use
  Company Number: RO-GENENTECH-317414

PATIENT
  Sex: Female
  Weight: 85 kg

DRUGS (4)
  1. BONIVA [Concomitant]
     Indication: OSTEOPOROSIS
     Dosage: 150 MG, 1/MONTH
  2. METHOTREXATE [Concomitant]
     Indication: RHEUMATOID ARTHRITIS
     Dosage: 20 MG, 1/WEEK
     Dates: start: 20020101
  3. DETRALEX [Concomitant]
     Indication: PRODUCT USED FOR UNKNOWN INDICATION
     Dosage: UNK
  4. MABTHERA [Suspect]
     Indication: RHEUMATOID ARTHRITIS
     Dosage: 1000 MG, Q6M
     Route: 042
     Dates: start: 20090916

REACTIONS (1)
  - GLIOBLASTOMA [None]
